FAERS Safety Report 16809719 (Version 2)
Quarter: 2022Q3

REPORT INFORMATION
  Report Type: Spontaneous
  Country: US (occurrence: US)
  Receive Date: 20190916
  Receipt Date: 20220726
  Transmission Date: 20221026
  Serious: Yes (Death, Life-Threatening, Other)
  Sender: FDA-Public Use
  Company Number: US-MYLANLABS-2019M1085767

PATIENT
  Age: 59 Year
  Sex: Male

DRUGS (17)
  1. ETOPOSIDE [Suspect]
     Active Substance: ETOPOSIDE
     Indication: Nodular lymphocyte predominant Hodgkin lymphoma
     Dosage: UNK UNK, CYCLE, RECEIVED 3 CYCLES
     Route: 065
  2. PREDNISOLONE [Suspect]
     Active Substance: PREDNISOLONE
     Indication: Nodular lymphocyte predominant Hodgkin lymphoma
     Dosage: UNK, CYCLE, RECEIVED 3 CYCLES
     Route: 065
  3. DOXORUBICIN [Suspect]
     Active Substance: DOXORUBICIN
     Indication: Hodgkin^s disease
     Dosage: UNK, CYCLE, RECEIVED 2 CYCLES
     Route: 065
  4. DOXORUBICIN [Suspect]
     Active Substance: DOXORUBICIN
     Indication: Nodular lymphocyte predominant Hodgkin lymphoma
     Dosage: UNK UNK, CYCLE, RECEIVED 3 CYCLES
     Route: 065
  5. IMATINIB [Suspect]
     Active Substance: IMATINIB
     Indication: Chronic myeloid leukaemia
     Dosage: UNK
     Route: 065
  6. PREDNISONE [Suspect]
     Active Substance: PREDNISONE
     Indication: Nodular lymphocyte predominant Hodgkin lymphoma
     Dosage: UNK, CYCLE, RECEIVED 3 CYCLES
     Route: 065
  7. BLEOMYCIN [Suspect]
     Active Substance: BLEOMYCIN SULFATE
     Indication: Hodgkin^s disease
     Dosage: UNK, CYCLE, RECEIVED 2 CYCLES
     Route: 065
  8. VINBLASTINE [Suspect]
     Active Substance: VINBLASTINE
     Indication: Hodgkin^s disease
     Dosage: UNK, CYCLE, RECEIVED 2 CYCLES
     Route: 065
  9. DACARBAZINE [Suspect]
     Active Substance: DACARBAZINE
     Indication: Hodgkin^s disease
     Dosage: UNK, CYCLE, RECEIVED 2 CYCLES
     Route: 065
  10. RITUXIMAB [Suspect]
     Active Substance: RITUXIMAB
     Indication: Nodular lymphocyte predominant Hodgkin lymphoma
     Dosage: UNK, CYCLE, RECEIVED 3 CYCLES
     Route: 065
  11. ONCOVIN [Suspect]
     Active Substance: VINCRISTINE SULFATE
     Indication: Nodular lymphocyte predominant Hodgkin lymphoma
     Dosage: UNK, CYCLE, RECEIVED 3 CYCLES
     Route: 065
  12. CYCLOPHOSPHAMIDE [Suspect]
     Active Substance: CYCLOPHOSPHAMIDE
     Indication: Nodular lymphocyte predominant Hodgkin lymphoma
     Dosage: UNK, CYCLE, RECEIVED 3 CYCLES
     Route: 065
  13. ERYTHROPOIETIN [Suspect]
     Active Substance: ERYTHROPOIETIN
     Indication: Chronic myeloid leukaemia
     Dosage: UNK
     Route: 065
  14. RUXOLITINIB [Concomitant]
     Active Substance: RUXOLITINIB
     Indication: Chronic myeloid leukaemia
     Dosage: 20 MILLIGRAM, BID, UPTITRATED TO 20 MG TWICE DAILY
     Route: 065
  15. RUXOLITINIB [Concomitant]
     Active Substance: RUXOLITINIB
     Dosage: DRUG WITHDRAWN AND RESTARTED
     Route: 065
  16. VENETOCLAX [Concomitant]
     Active Substance: VENETOCLAX
     Indication: Chronic myeloid leukaemia
     Dosage: UNK
     Route: 065
  17. AZACITIDINE [Concomitant]
     Active Substance: AZACITIDINE
     Indication: Chronic myeloid leukaemia
     Dosage: UNK
     Route: 065

REACTIONS (2)
  - Chronic myeloid leukaemia [Fatal]
  - Drug ineffective [Unknown]
